FAERS Safety Report 6045920-X (Version None)
Quarter: 2009Q1

REPORT INFORMATION
  Report Type: 
  Country: None (occurrence: None)
  Receive Date: 20090116
  Receipt Date: 20081229
  Transmission Date: 20090719
  Serious: Yes (Hospitalization)
  Sender: FDA-Public Use
  Company Number: 2008-04893

PATIENT
  Age: 62 Year
  Sex: Female
  Weight: 88 kg

DRUGS (2)
  1. VELCADE [Suspect]
     Indication: MULTIPLE MYELOMA
     Dosage: 2.4 MG, INTRAVENOUS
     Route: 042
  2. LASIX [Concomitant]

REACTIONS (2)
  - HYPOTENSION [None]
  - INFECTION [None]
